FAERS Safety Report 19375379 (Version 1)
Quarter: 2021Q2

REPORT INFORMATION
  Report Type: Spontaneous
  Country: SE (occurrence: SE)
  Receive Date: 20210604
  Receipt Date: 20210604
  Transmission Date: 20210717
  Serious: Yes (Hospitalization)
  Sender: FDA-Public Use
  Company Number: SE-PFIZER INC-2021609394

PATIENT
  Age: 39 Year
  Sex: Male

DRUGS (5)
  1. SERTRALINE HCL [Suspect]
     Active Substance: SERTRALINE HYDROCHLORIDE
     Dosage: 100 MG, DAILY
     Dates: start: 202104, end: 2021
  2. ZOLPIDEM [Concomitant]
     Active Substance: ZOLPIDEM TARTRATE
     Dosage: 1 TABLET AT NIGHT AS NEEDED
  3. QUETIAPINE. [Concomitant]
     Active Substance: QUETIAPINE
     Dosage: 1 TABLET AS NEEDED (MAX 6 TABLETS/DAY)
  4. PROPAVAN [Concomitant]
     Active Substance: PROPIOMAZINE
     Dosage: 1?2 IN THE EVENING AS NEEDED
  5. VOXRA [Concomitant]
     Active Substance: BUPROPION HYDROCHLORIDE
     Dosage: 300 MG, DAILY

REACTIONS (2)
  - Nystagmus [Unknown]
  - Dizziness [Unknown]

NARRATIVE: CASE EVENT DATE: 20210504
